FAERS Safety Report 15663209 (Version 3)
Quarter: 2019Q2

REPORT INFORMATION
  Report Type: Spontaneous
  Country: US (occurrence: US)
  Receive Date: 20181128
  Receipt Date: 20190521
  Transmission Date: 20190711
  Serious: Yes (Other)
  Sender: FDA-Public Use
  Company Number: US-SA-2018SA323232

PATIENT
  Age: 72 Year
  Sex: Male

DRUGS (3)
  1. DUPIXENT [Suspect]
     Active Substance: DUPILUMAB
     Indication: DERMATITIS CONTACT
     Dosage: 300 MG, QOW
     Route: 058
     Dates: start: 20181011, end: 20181101
  2. DUPIXENT [Suspect]
     Active Substance: DUPILUMAB
     Indication: ECZEMA
     Dosage: 300 MG, QOW
     Route: 058
  3. DUPIXENT [Suspect]
     Active Substance: DUPILUMAB
     Dosage: 300 MG
     Route: 058

REACTIONS (6)
  - Eye disorder [Unknown]
  - Rash pruritic [Recovering/Resolving]
  - Pain [Recovering/Resolving]
  - Gastric cancer [Unknown]
  - Rash [Unknown]
  - Discomfort [Recovering/Resolving]

NARRATIVE: CASE EVENT DATE: 20181101
